FAERS Safety Report 7003888-3 (Version None)
Quarter: 2010Q3

REPORT INFORMATION
  Report Type: 
  Country: None (occurrence: None)
  Receive Date: 20100917
  Receipt Date: 20100908
  Transmission Date: 20110219
  Serious: No
  Sender: FDA-Public Use
  Company Number: 012010

PATIENT
  Sex: Female

DRUGS (7)
  1. KEPPRA [Suspect]
     Indication: EPILEPSY
     Dosage: 500 MG, BID
     Dates: start: 20090801
  2. KEPPRA [Suspect]
     Indication: EPILEPSY
     Dosage: 250 MG QD, 500 MG BID, TAKING AT THE TIME OF SAB DATED 28/AUG/2008
     Dates: start: 20100101, end: 20100301
  3. KEPPRA [Suspect]
     Indication: EPILEPSY
     Dosage: 250 MG QD, 500 MG BID, TAKING AT THE TIME OF SAB DATED 28/AUG/2008
     Dates: start: 20090801
  4. FOLIC ACID [Suspect]
     Indication: PREGNANCY
     Dosage: 4 MG, QD, ORAL
     Route: 048
  5. PRENATAL VITAMINS [Concomitant]
  6. SYNTHROID [Concomitant]
  7. FISH OIL [Concomitant]

REACTIONS (4)
  - DRUG EXPOSURE DURING PREGNANCY [None]
  - DRUG LEVEL DECREASED [None]
  - PREGNANCY [None]
  - SUPPRESSED LACTATION [None]
